FAERS Safety Report 4319358-7 (Version None)
Quarter: 2004Q1

REPORT INFORMATION
  Report Type: 
  Country: None (occurrence: None)
  Receive Date: 20040319
  Receipt Date: 20040123
  Transmission Date: 20041129
  Serious: Yes (Other)
  Sender: FDA-Public Use
  Company Number: PHFR2004GB00737

PATIENT
  Sex: Male

DRUGS (2)
  1. TRILEPTAL [Suspect]
     Indication: EPILEPSY
     Dosage: 600MG/DAY
     Route: 048
  2. EPANUTIN                                /UNK/ [Concomitant]
     Indication: EPILEPSY
     Dosage: 3 AT NIGHT

REACTIONS (1)
  - SPERM COUNT ZERO [None]
